FAERS Safety Report 15057600 (Version 7)
Quarter: 2019Q1

REPORT INFORMATION
  Report Type: Spontaneous
  Country: US (occurrence: US)
  Receive Date: 20180625
  Receipt Date: 20190312
  Transmission Date: 20190417
  Serious: No
  Sender: FDA-Public Use
  Company Number: US-BIOGEN-2018BI00593053

PATIENT
  Age: 52 Year
  Sex: Male

DRUGS (15)
  1. FEXOFENADINE [Concomitant]
     Active Substance: FEXOFENADINE\FEXOFENADINE HYDROCHLORIDE
     Indication: PRODUCT USED FOR UNKNOWN INDICATION
     Route: 050
  2. AVONEX [Suspect]
     Active Substance: INTERFERON BETA-1A
     Dosage: SOLUTION FOR INJECTION/INFUSION
     Route: 030
     Dates: start: 20161124
  3. AMPYRA [Concomitant]
     Active Substance: DALFAMPRIDINE
     Indication: MULTIPLE SCLEROSIS
     Route: 050
  4. AVONEX [Suspect]
     Active Substance: INTERFERON BETA-1A
     Dosage: SOLUTION FOR INJECTION/INFUSION
     Route: 050
  5. AVONEX [Suspect]
     Active Substance: INTERFERON BETA-1A
     Dosage: SOLUTION FOR INJECTION/INFUSION
     Route: 050
     Dates: start: 2004
  6. AMPYRA [Concomitant]
     Active Substance: DALFAMPRIDINE
     Route: 050
     Dates: start: 20171104, end: 20181114
  7. AMPYRA [Concomitant]
     Active Substance: DALFAMPRIDINE
     Route: 050
  8. AVONEX [Suspect]
     Active Substance: INTERFERON BETA-1A
     Indication: MULTIPLE SCLEROSIS
     Route: 050
     Dates: start: 20151124
  9. AVONEX [Suspect]
     Active Substance: INTERFERON BETA-1A
     Dosage: SOLUTION FOR INJECTION/INFUSION
     Route: 050
     Dates: start: 20171026
  10. AVONEX [Suspect]
     Active Substance: INTERFERON BETA-1A
     Dosage: SOLUTION FOR INJECTION/INFUSION
     Route: 030
     Dates: start: 20171104
  11. AVONEX [Suspect]
     Active Substance: INTERFERON BETA-1A
     Dosage: SOLUTION FOR INJECTION/INFUSION
     Route: 030
     Dates: start: 20151124
  12. FLUTICASONE PROPIONATE. [Concomitant]
     Active Substance: FLUTICASONE PROPIONATE
     Indication: PRODUCT USED FOR UNKNOWN INDICATION
     Route: 050
  13. MODAFINIL. [Concomitant]
     Active Substance: MODAFINIL
     Indication: FATIGUE
     Route: 065
     Dates: start: 20181002
  14. AMPYRA [Concomitant]
     Active Substance: DALFAMPRIDINE
     Route: 050
  15. AMPYRA [Concomitant]
     Active Substance: DALFAMPRIDINE
     Route: 048
     Dates: start: 20181115

REACTIONS (6)
  - Motor dysfunction [Not Recovered/Not Resolved]
  - Mobility decreased [Not Recovered/Not Resolved]
  - Multiple sclerosis [Not Recovered/Not Resolved]
  - Fall [Recovered/Resolved]
  - Headache [Not Recovered/Not Resolved]
  - Seasonal allergy [Not Recovered/Not Resolved]

NARRATIVE: CASE EVENT DATE: 20171214
